FAERS Safety Report 20223147 (Version 1)
Quarter: 2021Q4

REPORT INFORMATION
  Report Type: Spontaneous
  Country: FR (occurrence: FR)
  Receive Date: 20211223
  Receipt Date: 20211223
  Transmission Date: 20220303
  Serious: Yes (Death)
  Sender: FDA-Public Use
  Company Number: FR-PANPHARMAP-2021009830

PATIENT
  Age: 82 Year
  Sex: Male

DRUGS (18)
  1. MIDAZOLAM HYDROCHLORIDE [Suspect]
     Active Substance: MIDAZOLAM HYDROCHLORIDE
     Indication: Palliative care
     Dosage: 4.8 MILLIGRAM, QD
     Route: 041
     Dates: start: 20210704, end: 20210718
  2. MIDAZOLAM [Suspect]
     Active Substance: MIDAZOLAM
     Indication: Palliative care
     Dosage: UNK, MIDAZOLAM DOSAGES WERE INCREASED
     Route: 041
     Dates: start: 20210809, end: 20210810
  3. MIDAZOLAM [Suspect]
     Active Substance: MIDAZOLAM
     Indication: Anxiety
     Dosage: 2 MILLIGRAM, PRN, UP TO 16 MG DAILY
     Route: 041
     Dates: start: 20210809, end: 20210815
  4. MIDAZOLAM [Suspect]
     Active Substance: MIDAZOLAM
     Indication: Sleep disorder
     Dosage: 40 MILLIGRAM, Q8H
     Route: 042
  5. MIDAZOLAM [Suspect]
     Active Substance: MIDAZOLAM
     Dosage: 40 MILLIGRAM, Q8H
     Route: 058
  6. METHYLPREDNISOLONE [Concomitant]
     Active Substance: METHYLPREDNISOLONE
     Dosage: 40 MILLIGRAM, Q8H
     Route: 058
  7. METHYLPREDNISOLONE [Concomitant]
     Active Substance: METHYLPREDNISOLONE
     Dosage: 40 MILLIGRAM, Q8H
     Route: 042
  8. DEXTROSE [Concomitant]
     Active Substance: DEXTROSE
     Dosage: 500 MILLILITER, QD
     Route: 042
  9. ALBUTEROL [Concomitant]
     Active Substance: ALBUTEROL
     Dosage: 5 MILLIGRAM
  10. MORPHINE [Concomitant]
     Active Substance: MORPHINE
     Indication: Pain
     Dosage: UNK, PRN
     Route: 058
     Dates: end: 20210815
  11. MORPHINE [Concomitant]
     Active Substance: MORPHINE
     Dosage: UNK, PRN
     Route: 042
     Dates: end: 20210815
  12. NORMACOL LAVAMENT [Concomitant]
     Dosage: MAXIMUM 1 DAILY USE
     Route: 054
  13. SCOPOLAMINE [Concomitant]
     Active Substance: SCOPOLAMINE
     Dosage: 2 MILLILITER, QH
  14. Voltarene [Concomitant]
     Indication: Pain
     Dosage: UNK
     Route: 003
  15. IPRATROPIUM BROMIDE [Concomitant]
     Active Substance: IPRATROPIUM BROMIDE
     Dosage: 0.5 MILLIGRAM
  16. HALDOL [Concomitant]
     Active Substance: HALOPERIDOL
     Indication: Vomiting
     Dosage: 1 MILLIGRAM, TOTAL
     Route: 030
     Dates: start: 20210815, end: 20210815
  17. HALDOL [Concomitant]
     Active Substance: HALOPERIDOL
     Indication: Nausea
     Dosage: 1 MG PER TAKE - MAXIMUM DAILY 3 MG
     Route: 042
  18. ACETAMINOPHEN [Concomitant]
     Active Substance: ACETAMINOPHEN
     Indication: Pain
     Dosage: MAXIMUM 1000 MG PER ADMINISTRATION - MAXIMUM 3000 MG PER DAY
     Route: 042

REACTIONS (4)
  - Death [Fatal]
  - Sedation complication [Unknown]
  - Drug ineffective for unapproved indication [Unknown]
  - Off label use [Unknown]

NARRATIVE: CASE EVENT DATE: 20210810
